FAERS Safety Report 7493566-9 (Version None)
Quarter: 2011Q2

REPORT INFORMATION
  Report Type: 
  Country: None (occurrence: None)
  Receive Date: 20110520
  Receipt Date: 20110513
  Transmission Date: 20111010
  Serious: Yes (Other)
  Sender: FDA-Public Use
  Company Number: GB-B.I. PHARMACEUTICALS,INC./RIDGEFIELD-2011-UK-00489UK

PATIENT
  Age: 56 Year
  Sex: Female

DRUGS (2)
  1. VARENICLINE TARTRATE [Suspect]
     Indication: SMOKING CESSATION THERAPY
     Dosage: 2/1DAYS
     Route: 048
     Dates: start: 20110208, end: 20110226
  2. CATAPRES [Suspect]
     Indication: MENOPAUSAL SYMPTOMS
     Dosage: 50 MG
     Route: 048
     Dates: start: 20110420

REACTIONS (3)
  - AGGRESSION [None]
  - DEPRESSION [None]
  - ANXIETY [None]
